FAERS Safety Report 6287185-X (Version None)
Quarter: 2009Q3

REPORT INFORMATION
  Report Type: 
  Country: None (occurrence: None)
  Receive Date: 20090728
  Receipt Date: 20090715
  Transmission Date: 20100115
  Serious: Yes (Death)
  Sender: FDA-Public Use
  Company Number: DK-GENENTECH-287423

PATIENT

DRUGS (4)
  1. ACTIVASE [Suspect]
     Indication: ACUTE MYOCARDIAL INFARCTION
     Dosage: UNK
  2. ASPIRIN [Suspect]
     Indication: ACUTE MYOCARDIAL INFARCTION
     Dosage: UNK
  3. BETA BLOCKER NOS [Suspect]
     Indication: ACUTE MYOCARDIAL INFARCTION
     Dosage: UNK
  4. UNFRACTIONATED HEPARIN [Suspect]
     Indication: ACUTE MYOCARDIAL INFARCTION

REACTIONS (1)
  - RENAL FAILURE [None]
